FAERS Safety Report 10392499 (Version 4)
Quarter: 2015Q1

REPORT INFORMATION
  Report Type: Spontaneous
  Country: US (occurrence: US)
  Receive Date: 20140819
  Receipt Date: 20150327
  Transmission Date: 20150720
  Serious: Yes (Other)
  Sender: FDA-Public Use
  Company Number: US-ELI_LILLY_AND_COMPANY-US201408005374

PATIENT
  Sex: Female

DRUGS (6)
  1. REMODULIN [Concomitant]
     Active Substance: TREPROSTINIL
     Dosage: UNK, UNKNOWN
     Route: 065
  2. LETAIRIS [Suspect]
     Active Substance: AMBRISENTAN
     Dosage: 0.5 DF, QD
     Route: 065
  3. WARFARIN [Concomitant]
     Active Substance: WARFARIN
     Dosage: UNK, UNKNOWN
     Route: 065
  4. ADCIRCA [Suspect]
     Active Substance: TADALAFIL
     Indication: PRODUCT USED FOR UNKNOWN INDICATION
     Dosage: UNK, UNKNOWN
     Route: 065
  5. LETAIRIS [Suspect]
     Active Substance: AMBRISENTAN
     Dosage: 10 MG, QD
     Route: 065
     Dates: start: 20130317
  6. LETAIRIS [Suspect]
     Active Substance: AMBRISENTAN
     Indication: PRODUCT USED FOR UNKNOWN INDICATION
     Dosage: 10 MG, QD
     Route: 065
     Dates: start: 20070817

REACTIONS (15)
  - Dry mouth [Unknown]
  - Diarrhoea [Unknown]
  - Feeling of body temperature change [Unknown]
  - Deafness [Unknown]
  - Mood altered [Unknown]
  - Tooth disorder [Unknown]
  - Fatigue [Unknown]
  - Visual impairment [Unknown]
  - Swollen tongue [Unknown]
  - Haemoglobin decreased [Unknown]
  - Oral pain [Unknown]
  - Lethargy [Unknown]
  - Blood viscosity decreased [Unknown]
  - Pharyngeal oedema [Unknown]
  - Dysphagia [Unknown]
